FAERS Safety Report 9479787 (Version 1)
Quarter: 2013Q3

REPORT INFORMATION
  Report Type: Spontaneous
  Country: DE (occurrence: DE)
  Receive Date: 20130828
  Receipt Date: 20130828
  Transmission Date: 20140515
  Serious: Yes (Death, Hospitalization, Other)
  Sender: FDA-Public Use
  Company Number: DE-AMGEN-DEUSP2010007257

PATIENT
  Age: 0 Day
  Sex: Male
  Weight: 1.1 kg

DRUGS (2)
  1. ENBREL FERTIGSPRITZE [Suspect]
     Indication: PRODUCT USED FOR UNKNOWN INDICATION
     Dosage: 25 MG, EVERY 10 DAYS
     Dates: start: 20080401
  2. ACETYLSALICYLIC ACID [Suspect]
     Indication: PRODUCT USED FOR UNKNOWN INDICATION
     Dosage: 75 MG PER DAY
     Route: 064
     Dates: start: 200910

REACTIONS (5)
  - Multi-organ failure [Fatal]
  - Cerebral haemorrhage [Unknown]
  - Premature baby [Unknown]
  - Exposure via body fluid [Fatal]
  - Foetal exposure during pregnancy [Fatal]
